FAERS Safety Report 5097539-5 (Version None)
Quarter: 2006Q3

REPORT INFORMATION
  Report Type: 
  Country: None (occurrence: None)
  Receive Date: 20060901
  Receipt Date: 20060821
  Transmission Date: 20061208
  Serious: Yes (Death)
  Sender: FDA-Public Use
  Company Number: GXKR2006GB05150

PATIENT
  Sex: Male

DRUGS (1)
  1. PAROXETINE HCL [Suspect]
     Dates: start: 19970430

REACTIONS (6)
  - ANXIETY [None]
  - ASTHENIA [None]
  - COMPLETED SUICIDE [None]
  - DEPRESSED MOOD [None]
  - ILL-DEFINED DISORDER [None]
  - POOR QUALITY SLEEP [None]
